FAERS Safety Report 12316713 (Version 1)
Quarter: 2016Q2

REPORT INFORMATION
  Report Type: Spontaneous
  Country: IT (occurrence: IT)
  Receive Date: 20160429
  Receipt Date: 20160429
  Transmission Date: 20160815
  Serious: Yes (Hospitalization)
  Sender: FDA-Public Use
  Company Number: IT-SUN PHARMACEUTICAL INDUSTRIES LTD-2016RR-115592

PATIENT
  Age: 46 Year
  Sex: Female

DRUGS (3)
  1. SOLDESAM 8 MG/2 ML [Suspect]
     Active Substance: DEXAMETHASONE
     Indication: GLIOMA
     Dosage: 8 MG DAILY
     Route: 030
     Dates: start: 20150705, end: 20150929
  2. TEMOZOLOMIDE. [Suspect]
     Active Substance: TEMOZOLOMIDE
     Indication: GLIOMA
     Dosage: 75 MG/M2 CYCLICAL
     Route: 048
     Dates: start: 20150720, end: 20150929
  3. KEPPRA [Concomitant]
     Active Substance: LEVETIRACETAM
     Indication: PRODUCT USED FOR UNKNOWN INDICATION
     Route: 065

REACTIONS (3)
  - Respiratory failure [Recovered/Resolved]
  - Pneumonia cytomegaloviral [Recovered/Resolved]
  - Hyperglycaemia [Recovered/Resolved]

NARRATIVE: CASE EVENT DATE: 20150929
